FAERS Safety Report 8755826 (Version 3)
Quarter: 2013Q3

REPORT INFORMATION
  Report Type: Spontaneous
  Country: US (occurrence: US)
  Receive Date: 20120827
  Receipt Date: 20130808
  Transmission Date: 20140515
  Serious: No
  Sender: FDA-Public Use
  Company Number: US-PFIZER INC-2012206851

PATIENT
  Age: 59 Year
  Sex: Male
  Weight: 88.44 kg

DRUGS (9)
  1. LYRICA [Suspect]
     Indication: SCIATICA
     Dosage: 150 MG, DAILY
     Route: 048
     Dates: start: 2010
  2. LYRICA [Suspect]
     Dosage: 75 MG, UNK
     Route: 048
  3. LYRICA [Suspect]
     Dosage: 150 MG, 3X/DAY
     Route: 048
     Dates: end: 20120818
  4. LYRICA [Suspect]
     Dosage: 75 MG, 3X/DAY
     Route: 048
  5. LYRICA [Suspect]
     Dosage: 75 MG, 2X/DAY
     Route: 048
     Dates: end: 20130731
  6. FENTANYL [Concomitant]
     Indication: BREAKTHROUGH PAIN
     Dosage: UNK, EVERY 48 HOURS
     Dates: start: 2010
  7. HYDROCODONE [Concomitant]
     Indication: BREAKTHROUGH PAIN
     Dosage: 150 MG, 2X/DAY
     Dates: start: 2005
  8. PAXIL [Concomitant]
     Indication: BREAKTHROUGH PAIN
     Dosage: 40 MG, DAILY
     Dates: start: 2005
  9. PAXIL [Concomitant]
     Indication: DEPRESSION

REACTIONS (9)
  - Off label use [Unknown]
  - Paraesthesia [Unknown]
  - Burning sensation [Unknown]
  - Insomnia [Unknown]
  - Pyrexia [Unknown]
  - Neuralgia [Unknown]
  - Hypertension [Unknown]
  - Intentional drug misuse [Unknown]
  - Agitation [Unknown]
